FAERS Safety Report 19201281 (Version 1)
Quarter: 2021Q2

REPORT INFORMATION
  Report Type: Spontaneous
  Country: US (occurrence: US)
  Receive Date: 20210430
  Receipt Date: 20210430
  Transmission Date: 20210717
  Serious: Yes (Hospitalization, Other)
  Sender: FDA-Public Use
  Company Number: US-SA-2016SA218369

PATIENT
  Age: 75 Year
  Sex: Female
  Weight: 62.6 kg

DRUGS (2)
  1. CAPRELSA [Suspect]
     Active Substance: VANDETANIB
     Dosage: 300 MG,QD
     Route: 048
     Dates: start: 20161101
  2. CAPRELSA [Suspect]
     Active Substance: VANDETANIB
     Indication: THYROID CANCER
     Dosage: 300 UNK
     Route: 048
     Dates: start: 20161015, end: 20210419

REACTIONS (3)
  - Diarrhoea [Recovering/Resolving]
  - Neoplasm progression [Unknown]
  - Hospitalisation [Unknown]

NARRATIVE: CASE EVENT DATE: 201610
